FAERS Safety Report 20751913 (Version 2)
Quarter: 2022Q2

REPORT INFORMATION
  Report Type: Spontaneous
  Country: JP (occurrence: JP)
  Receive Date: 20220426
  Receipt Date: 20220504
  Transmission Date: 20220721
  Serious: Yes (Hospitalization)
  Sender: FDA-Public Use
  Company Number: JP-LEO Pharma-342306

PATIENT
  Age: 69 Year
  Sex: Female

DRUGS (1)
  1. DOVONEX [Suspect]
     Active Substance: CALCIPOTRIENE
     Indication: Product used for unknown indication
     Dosage: DOSAGE : OINTMENT, TOPICAL, WHOLE BODY
     Route: 061

REACTIONS (1)
  - Hospitalisation [Unknown]
